FAERS Safety Report 6854055-5 (Version None)
Quarter: 2010Q3

REPORT INFORMATION
  Report Type: 
  Country: None (occurrence: None)
  Receive Date: 20100717
  Receipt Date: 20071228
  Transmission Date: 20110219
  Serious: No
  Sender: FDA-Public Use
  Company Number: US-PFIZER INC-2008000651

PATIENT
  Sex: Female

DRUGS (5)
  1. CHANTIX [Suspect]
     Indication: SMOKING CESSATION THERAPY
     Dates: start: 20061201, end: 20071101
  2. MULTI-VITAMINS [Concomitant]
  3. CALCIUM [Concomitant]
  4. VITAMIN C [Concomitant]
  5. LECITHIN [Concomitant]

REACTIONS (3)
  - FATIGUE [None]
  - HEADACHE [None]
  - LETHARGY [None]
